FAERS Safety Report 10982417 (Version 4)
Quarter: 2015Q4

REPORT INFORMATION
  Report Type: Spontaneous
  Country: US (occurrence: US)
  Receive Date: 20150403
  Receipt Date: 20151021
  Transmission Date: 20160304
  Serious: Yes (Disabling, Other)
  Sender: FDA-Public Use
  Company Number: US-PFIZER INC-2015114901

PATIENT
  Age: 80 Year
  Sex: Male
  Weight: 86 kg

DRUGS (12)
  1. FLUOXETINE [Concomitant]
     Active Substance: FLUOXETINE HYDROCHLORIDE
     Indication: DEPRESSION
     Dosage: 20 MG, 2X/DAY
  2. ALLOPURINOL. [Concomitant]
     Active Substance: ALLOPURINOL
     Indication: GOUT
     Dosage: 100 MG, DAILY
     Dates: start: 2000
  3. ZOLPIDEM [Concomitant]
     Active Substance: ZOLPIDEM\ZOLPIDEM TARTRATE
     Dosage: 10 MG, 1X/DAY(AT BED TIME)
  4. POTASSIUM CL [Concomitant]
     Active Substance: POTASSIUM CHLORIDE
     Dosage: 10 MG, 1X/DAY
  5. AXOTAL [Concomitant]
     Active Substance: ASPIRIN\BUTALBITAL
     Indication: MIGRAINE
     Dosage: 50/325/40 MG, UNK
  6. LYRICA [Suspect]
     Active Substance: PREGABALIN
     Indication: FIBROMYALGIA
     Dosage: 50 MG, 3X/DAY
     Route: 048
  7. LYRICA [Suspect]
     Active Substance: PREGABALIN
     Dosage: UNK
     Dates: end: 201505
  8. TIZANIDINE. [Concomitant]
     Active Substance: TIZANIDINE
     Indication: THERAPEUTIC RESPONSE UNEXPECTED
     Dosage: 4 MG, 1X/DAY(AT BED TIME)
  9. PRAVASTATIN [Concomitant]
     Active Substance: PRAVASTATIN\PRAVASTATIN SODIUM
     Indication: BLOOD CHOLESTEROL
     Dosage: 80 MG, 1X/DAY
  10. TRIAMTERENE AND HYDROCHLOROTHIAZIDE [Concomitant]
     Active Substance: HYDROCHLOROTHIAZIDE\TRIAMTERENE
     Indication: GASTROOESOPHAGEAL REFLUX DISEASE
     Dosage: 75/50 MG, DAILY
  11. LYRICA [Suspect]
     Active Substance: PREGABALIN
     Indication: PERIPHERAL NERVE INJURY
     Dosage: 75 MG, 2X/DAY
  12. PANTOPRAZOLE [Concomitant]
     Active Substance: PANTOPRAZOLE SODIUM
     Dosage: 40 MG, UNK

REACTIONS (10)
  - Renal impairment [Unknown]
  - Drug dependence [Unknown]
  - Pain in extremity [Unknown]
  - Insomnia [Unknown]
  - Bedridden [Unknown]
  - Activities of daily living impaired [Unknown]
  - Weight increased [Unknown]
  - Abasia [Unknown]
  - Pain [Unknown]
  - Arthralgia [Unknown]
